FAERS Safety Report 19166672 (Version 1)
Quarter: 2021Q2

REPORT INFORMATION
  Report Type: Not Available
  Country: None (occurrence: None)
  Receive Date: 20210421
  Receipt Date: 20210421
  Transmission Date: 20210717
  Serious: No
  Sender: FDA-Public Use
  Company Number: US-AKORN-166074

PATIENT
  Sex: Male

DRUGS (1)
  1. TIMOLOL MALEATE OPHTHALMIC SOLUTION, USP [Suspect]
     Active Substance: TIMOLOL MALEATE

REACTIONS (1)
  - Eye irritation [Recovered/Resolved]
